FAERS Safety Report 12394850 (Version 2)
Quarter: 2016Q2

REPORT INFORMATION
  Report Type: Spontaneous
  Country: JP (occurrence: JP)
  Receive Date: 20160523
  Receipt Date: 20160606
  Transmission Date: 20160815
  Serious: Yes (Hospitalization)
  Sender: FDA-Public Use
  Company Number: JP-ELI_LILLY_AND_COMPANY-JP201605006582

PATIENT
  Age: 25 Year
  Sex: Female

DRUGS (2)
  1. ADCIRCA [Suspect]
     Active Substance: TADALAFIL
     Indication: PULMONARY ARTERIAL HYPERTENSION
     Dosage: 20 MG, QD
     Route: 048
     Dates: start: 20160421
  2. TRACLEER [Concomitant]
     Active Substance: BOSENTAN
     Route: 048

REACTIONS (1)
  - Seizure [Recovered/Resolved]

NARRATIVE: CASE EVENT DATE: 20160518
